FAERS Safety Report 23074636 (Version 1)
Quarter: 2023Q4

REPORT INFORMATION
  Report Type: Spontaneous
  Country: US (occurrence: US)
  Receive Date: 20231017
  Receipt Date: 20231017
  Transmission Date: 20240110
  Serious: Yes (Death, Life-Threatening, Hospitalization)
  Sender: FDA-Public Use
  Company Number: US-TEVA-2023-US-2935230

PATIENT
  Sex: Female

DRUGS (1)
  1. COLCHICINE [Suspect]
     Active Substance: COLCHICINE
     Indication: Product used for unknown indication
     Dosage: 54 MG (0.68 MG/KG)
     Route: 048

REACTIONS (16)
  - Toxicity to various agents [Fatal]
  - Intentional overdose [Fatal]
  - Disseminated intravascular coagulation [Fatal]
  - Diarrhoea [Unknown]
  - Respiratory acidosis [Unknown]
  - Lactic acidosis [Unknown]
  - Leukocytosis [Unknown]
  - Hypotension [Unknown]
  - Multiple organ dysfunction syndrome [Unknown]
  - Toxic cardiomyopathy [Unknown]
  - Renal failure [Unknown]
  - Liver injury [Unknown]
  - Hepatic failure [Unknown]
  - Hypoglycaemia [Unknown]
  - Mouth haemorrhage [Unknown]
  - Catheter site haemorrhage [Unknown]
